FAERS Safety Report 25792855 (Version 3)
Quarter: 2025Q3

REPORT INFORMATION
  Report Type: Spontaneous
  Country: US (occurrence: US)
  Receive Date: 20250911
  Receipt Date: 20250930
  Transmission Date: 20251021
  Serious: No
  Sender: SANDOZ
  Company Number: US-002147023-NVSC2025US140669

PATIENT
  Age: 67 Year
  Sex: Male
  Weight: 99.7 kg

DRUGS (2)
  1. AZITHROMYCIN [Suspect]
     Active Substance: AZITHROMYCIN
     Indication: Mycobacterium chelonae infection
     Dosage: 500 MG, QD, (LAST DATE OF DOSE TAKEN  PRIOR TO AE WAS ON 18 AUG 2025)
     Route: 048
     Dates: start: 20250606, end: 20250828
  2. LAMPRENE [Suspect]
     Active Substance: CLOFAZIMINE
     Indication: Mycobacterium chelonae infection
     Dosage: 100 MG, QD(LAST DATE OF DOSE TAKEN PRIOR  TO AE WAS ON 18 AUG 2025)
     Route: 048
     Dates: start: 20250617, end: 20250828

REACTIONS (2)
  - Aspartate aminotransferase increased [Not Recovered/Not Resolved]
  - Alanine aminotransferase increased [Not Recovered/Not Resolved]

NARRATIVE: CASE EVENT DATE: 20250818
